FAERS Safety Report 13829826 (Version 1)
Quarter: 2017Q3

REPORT INFORMATION
  Report Type: Spontaneous
  Country: CL (occurrence: US)
  Receive Date: 20170803
  Receipt Date: 20170803
  Transmission Date: 20171127
  Serious: Yes (Hospitalization, Other)
  Sender: FDA-Public Use
  Company Number: CL-KOWA-17US001526

PATIENT
  Age: 30 Year
  Sex: Female

DRUGS (5)
  1. OMEGA 3                            /06852001/ [Concomitant]
     Active Substance: OMEGA-3 FATTY ACIDS
     Indication: PANCREATITIS
     Dosage: 2 DF, TID
     Dates: start: 2012
  2. SUNFLOWER OIL [Concomitant]
     Active Substance: HERBALS\SUNFLOWER OIL
     Indication: PRODUCT USED FOR UNKNOWN INDICATION
     Dosage: UNK
     Dates: start: 2012
  3. FENOFIBRATE. [Suspect]
     Active Substance: FENOFIBRATE
     Indication: HYPERTRIGLYCERIDAEMIA
     Dosage: 200 MG
     Dates: start: 2012
  4. METFORMIN [Concomitant]
     Active Substance: METFORMIN HYDROCHLORIDE
     Indication: INSULIN RESISTANCE
  5. OLISTAT [Concomitant]
     Active Substance: ORLISTAT
     Indication: HYPERTRIGLYCERIDAEMIA
     Dosage: 120 MG, TID

REACTIONS (7)
  - Inflammatory marker increased [Unknown]
  - Abdominal pain [Unknown]
  - Pancreatitis [Unknown]
  - Blood triglycerides increased [Unknown]
  - Lipase increased [Unknown]
  - Tachycardia [Unknown]
  - Pregnancy [Unknown]

NARRATIVE: CASE EVENT DATE: 2012
